FAERS Safety Report 25787526 (Version 3)
Quarter: 2025Q4

REPORT INFORMATION
  Report Type: Spontaneous
  Country: US (occurrence: US)
  Receive Date: 20250910
  Receipt Date: 20251205
  Transmission Date: 20260117
  Serious: Yes (Hospitalization)
  Sender: ROCHE
  Company Number: US-ROCHE-10000383317

PATIENT
  Age: 74 Year
  Sex: Female

DRUGS (1)
  1. ERIVEDGE [Suspect]
     Active Substance: VISMODEGIB
     Indication: Basal cell carcinoma
     Dosage: LAST DOSE ON 28-AUG-2025
     Route: 048
     Dates: start: 20250205

REACTIONS (4)
  - Asthenia [Unknown]
  - CSF protein increased [Unknown]
  - Motor dysfunction [Not Recovered/Not Resolved]
  - Guillain-Barre syndrome [Unknown]

NARRATIVE: CASE EVENT DATE: 20250817
